FAERS Safety Report 10484166 (Version 1)
Quarter: 2014Q3

REPORT INFORMATION
  Report Type: Spontaneous
  Country: US (occurrence: US)
  Receive Date: 20140930
  Receipt Date: 20140930
  Transmission Date: 20150326
  Serious: Yes (Other)
  Sender: FDA-Public Use
  Company Number: US-ASPEN PHARMA TRADING LIMITED US-AG-2014-005839

PATIENT
  Age: 4 Year
  Sex: Male

DRUGS (3)
  1. BUSULFAN [Suspect]
     Active Substance: BUSULFAN
     Indication: BONE MARROW CONDITIONING REGIMEN
     Dosage: DOSE ADJUSTED TO AN AUC OF 900-1600 MICROMOLES/L PER DOSE, EVERY 6 HOURS FOR EIGHT DOSES
     Route: 065
  2. ALEMTUZUMAB [Suspect]
     Active Substance: ALEMTUZUMAB
     Indication: BONE MARROW CONDITIONING REGIMEN
     Dosage: 0.6 MG/KG  ON DAYS -9 TO -6
     Route: 065
  3. FLUDARABINE [Suspect]
     Active Substance: FLUDARABINE PHOSPHATE
     Indication: BONE MARROW CONDITIONING REGIMEN
     Dosage: 180 MG/M2 ON DAYS -7 THROUGH -2
     Route: 065

REACTIONS (4)
  - Graft loss [Recovered/Resolved]
  - Bone marrow failure [Recovered/Resolved]
  - Cytomegalovirus infection [Recovered/Resolved]
  - Graft complication [Recovered/Resolved]
